FAERS Safety Report 9883575 (Version 2)
Quarter: 2014Q1

REPORT INFORMATION
  Report Type: Report from Study
  Country: CZ (occurrence: CZ)
  Receive Date: 20140210
  Receipt Date: 20140214
  Transmission Date: 20141002
  Serious: Yes (Life-Threatening, Other)
  Sender: FDA-Public Use
  Company Number: CZ-ROCHE-1342727

PATIENT
  Age: 55 Year
  Sex: Female

DRUGS (10)
  1. RITUXIMAB [Suspect]
     Indication: B-CELL LYMPHOMA
     Route: 065
  2. IFOSFAMIDE [Suspect]
     Indication: B-CELL LYMPHOMA
     Route: 065
  3. ETOPOSIDE [Suspect]
     Indication: B-CELL LYMPHOMA
     Route: 065
  4. MESNA [Suspect]
     Indication: B-CELL LYMPHOMA
     Route: 065
  5. MITOXANTRONE [Suspect]
     Indication: B-CELL LYMPHOMA
     Route: 065
  6. CYCLOPHOSPHAMIDE [Concomitant]
     Indication: B-CELL LYMPHOMA
  7. DOXORUBICIN [Concomitant]
     Indication: B-CELL LYMPHOMA
  8. VINCRISTINE [Concomitant]
     Indication: B-CELL LYMPHOMA
  9. PREDNISOLONE [Concomitant]
     Indication: B-CELL LYMPHOMA
  10. CARBOPLATIN [Concomitant]
     Indication: B-CELL LYMPHOMA

REACTIONS (2)
  - Infection [Unknown]
  - Colitis [Unknown]
